FAERS Safety Report 20278926 (Version 1)
Quarter: 2022Q1

REPORT INFORMATION
  Report Type: Spontaneous
  Country: RU (occurrence: RU)
  Receive Date: 20220103
  Receipt Date: 20220103
  Transmission Date: 20220423
  Serious: Yes (Hospitalization)
  Sender: FDA-Public Use
  Company Number: RU-NOVARTISPH-NVSC2021RU300002

PATIENT
  Age: 25 Year
  Sex: Female
  Weight: 57 kg

DRUGS (3)
  1. TRILEPTAL [Suspect]
     Active Substance: OXCARBAZEPINE
     Indication: Borderline personality disorder
     Dosage: 15 MG, BID
     Route: 048
     Dates: start: 20211219, end: 20211219
  2. SEROQUEL [Concomitant]
     Active Substance: QUETIAPINE FUMARATE
     Indication: Borderline personality disorder
     Dosage: 12.5 MG, BID (6250 UG)
     Route: 048
     Dates: start: 20211219, end: 20211219
  3. VELAXIN [Concomitant]
     Indication: Borderline personality disorder
     Dosage: 75 MG, BID (37500 UG)
     Route: 048
     Dates: start: 20211219, end: 20211219

REACTIONS (4)
  - Cold sweat [Recovering/Resolving]
  - Asthenia [Recovering/Resolving]
  - Somnolence [Recovering/Resolving]
  - Nausea [Recovering/Resolving]

NARRATIVE: CASE EVENT DATE: 20211220
